FAERS Safety Report 5645523-2 (Version None)
Quarter: 2008Q1

REPORT INFORMATION
  Report Type: 
  Country: None (occurrence: None)
  Receive Date: 20080229
  Receipt Date: 20080226
  Transmission Date: 20080703
  Serious: Yes (Life-Threatening, Other)
  Sender: FDA-Public Use
  Company Number: SE-ASTRAZENECA-2008SE00838

PATIENT
  Age: 28037 Day
  Sex: Female

DRUGS (11)
  1. METOPROLOL TARTRATE [Suspect]
     Route: 048
     Dates: start: 20080211
  2. AZD6140 CODE NOT BROKEN [Suspect]
     Indication: ACUTE CORONARY SYNDROME
     Route: 048
     Dates: start: 20080212
  3. DIAZEPAM [Concomitant]
     Dates: start: 20080212, end: 20080212
  4. AVANDAMET [Concomitant]
  5. LASIX [Concomitant]
  6. SIMVASTATIN [Concomitant]
  7. KININ [Concomitant]
     Dates: end: 20080211
  8. LEVOTHYROXINE SODIUM [Concomitant]
  9. PLAVIX [Concomitant]
     Dates: start: 20080211, end: 20080212
  10. ASPIRIN [Concomitant]
  11. FRAGMIN [Concomitant]
     Dates: start: 20080211, end: 20080212

REACTIONS (1)
  - CARDIAC ARREST [None]
